FAERS Safety Report 9154872 (Version 1)
Quarter: 2013Q1

REPORT INFORMATION
  Report Type: Spontaneous
  Country: US (occurrence: None)
  Receive Date: 20130219
  Receipt Date: 20130219
  Transmission Date: 20140127
  Serious: Yes (Life-Threatening, Hospitalization, Disabling)
  Sender: FDA-Public Use
  Company Number: FK201300405

PATIENT
  Age: 59 Year
  Sex: Male

DRUGS (4)
  1. HEPARIN [Suspect]
     Indication: PRODUCT USED FOR UNKNOWN INDICATION
     Route: 042
  2. WARFARIN (WARFARIN) [Concomitant]
  3. TISSUE THROMBOPLASTIN ACTIVATOR [Concomitant]
  4. EPTIFIBATIDE (EPTIFIBATIDE) [Concomitant]

REACTIONS (9)
  - Ecthyma [None]
  - Deep vein thrombosis [None]
  - Heparin-induced thrombocytopenia [None]
  - Blood alkaline phosphatase increased [None]
  - Gamma-glutamyltransferase increased [None]
  - Staphylococcal infection [None]
  - Leg amputation [None]
  - Arterial thrombosis [None]
  - Skin discolouration [None]
